FAERS Safety Report 6982901-3 (Version None)
Quarter: 2010Q3

REPORT INFORMATION
  Report Type: 
  Country: None (occurrence: None)
  Receive Date: 20100914
  Receipt Date: 20100122
  Transmission Date: 20110219
  Serious: No
  Sender: FDA-Public Use
  Company Number: US-PFIZER INC-2010054353

PATIENT
  Sex: Male
  Weight: 93.424 kg

DRUGS (1)
  1. LYRICA [Suspect]

REACTIONS (5)
  - DIZZINESS [None]
  - EJACULATION DISORDER [None]
  - ERECTILE DYSFUNCTION [None]
  - PAIN IN EXTREMITY [None]
  - PARAESTHESIA [None]
